FAERS Safety Report 8487262 (Version 2)
Quarter: 2015Q2

REPORT INFORMATION
  Report Type: Spontaneous
  Country: US (occurrence: US)
  Receive Date: 20120402
  Receipt Date: 20150423
  Transmission Date: 20150821
  Serious: Yes (Congenital Anomaly)
  Sender: FDA-Public Use
  Company Number: US-ELI_LILLY_AND_COMPANY-US201203008631

PATIENT

DRUGS (3)
  1. PROZAC [Suspect]
     Active Substance: FLUOXETINE HYDROCHLORIDE
     Indication: DEPRESSION
     Dosage: 20 MG, QD
     Route: 064
  2. PROZAC [Suspect]
     Active Substance: FLUOXETINE HYDROCHLORIDE
     Dosage: 40 MG, QD
     Route: 064
  3. IMIPRAMINE [Concomitant]
     Active Substance: IMIPRAMINE
     Route: 064

REACTIONS (3)
  - Ventricular septal defect [Unknown]
  - Atrial septal defect [Recovered/Resolved]
  - Foetal exposure during pregnancy [Unknown]
